FAERS Safety Report 8065429-1 (Version None)
Quarter: 2011Q4

REPORT INFORMATION
  Report Type: 
  Country: None (occurrence: None)
  Receive Date: 20111221
  Receipt Date: 20110324
  Transmission Date: 20120403
  Serious: Yes (Hospitalization)
  Sender: FDA-Public Use
  Company Number: PHHY2011US38061

PATIENT
  Sex: Female
  Weight: 62 kg

DRUGS (8)
  1. EXJADE [Suspect]
     Indication: SICKLE CELL ANAEMIA
     Dosage: 1000 MG DAILY, ORAL
     Route: 048
     Dates: start: 20060810
  2. FOLIC (FOLIC ACID) [Concomitant]
  3. METHADONE HCL [Concomitant]
  4. DILAUDID [Concomitant]
  5. ATENOLOL [Concomitant]
  6. REVATIO [Concomitant]
  7. ZOFRAN [Concomitant]
  8. PROTONIX [Concomitant]

REACTIONS (1)
  - RENAL FAILURE ACUTE [None]
